FAERS Safety Report 4944711-8 (Version None)
Quarter: 2006Q1

REPORT INFORMATION
  Report Type: 
  Country: None (occurrence: None)
  Receive Date: 20060123
  Receipt Date: 20050721
  Transmission Date: 20060701
  Serious: Yes (Death)
  Sender: FDA-Public Use
  Company Number: PHEH2005US08081

PATIENT
  Age: 71 Year
  Sex: Male

DRUGS (9)
  1. SANDOSTATIN LAR [Suspect]
     Indication: CARCINOID SYNDROME
     Dosage: 20 MG, QMO, INJECTION NOS; 30 MG, INJECTION NOS; 50 MG, QMO, INJECTION NOS
     Dates: start: 20020711, end: 20021003
  2. SANDOSTATIN LAR [Suspect]
     Indication: CARCINOID SYNDROME
     Dosage: 20 MG, QMO, INJECTION NOS; 30 MG, INJECTION NOS; 50 MG, QMO, INJECTION NOS
     Dates: start: 20021101, end: 20021201
  3. SANDOSTATIN LAR [Suspect]
     Indication: CARCINOID SYNDROME
     Dosage: 20 MG, QMO, INJECTION NOS; 30 MG, INJECTION NOS; 50 MG, QMO, INJECTION NOS
     Dates: start: 20030103, end: 20030327
  4. FLUOROURACIL [Concomitant]
  5. POTASSIUM (POTASSIUM) [Concomitant]
  6. ALDACTAZIDE [Concomitant]
  7. ALDORIL (HYDROCHLOROTHIAZIDE, METHYLDOPA) [Concomitant]
  8. CELEBREX [Concomitant]
  9. CLARITIN [Concomitant]

REACTIONS (2)
  - MALIGNANT NEOPLASM PROGRESSION [None]
  - METASTASES TO LIVER [None]
